FAERS Safety Report 9556322 (Version 2)
Quarter: 2013Q3

REPORT INFORMATION
  Report Type: Spontaneous
  Country: BR (occurrence: BR)
  Receive Date: 20130926
  Receipt Date: 20130926
  Transmission Date: 20140515
  Serious: Yes (Death)
  Sender: FDA-Public Use
  Company Number: BR-PFIZER INC-2012185560

PATIENT
  Age: 75 Year
  Sex: Male
  Weight: 60 kg

DRUGS (3)
  1. SUTENT [Suspect]
     Indication: RENAL CELL CARCINOMA
     Dosage: 50 MG, CYCLIC (4 FOR 2)
     Route: 048
     Dates: start: 20120418
  2. ENALAPRIL [Concomitant]
     Dosage: 10 MG, 2X/DAY
  3. ATENOLOL [Concomitant]
     Dosage: 25 MG, 2X/DAY

REACTIONS (7)
  - Death [Fatal]
  - Hallucination [Unknown]
  - Rash macular [Unknown]
  - Activities of daily living impaired [Unknown]
  - Rash macular [Recovered/Resolved]
  - Vomiting [Unknown]
  - Insomnia [Unknown]
